FAERS Safety Report 11119637 (Version 1)
Quarter: 2015Q2

REPORT INFORMATION
  Report Type: Spontaneous
  Country: BR (occurrence: BR)
  Receive Date: 20150518
  Receipt Date: 20150518
  Transmission Date: 20150821
  Serious: Yes (Hospitalization, Other)
  Sender: FDA-Public Use
  Company Number: BR-PFIZER INC-2015163486

PATIENT
  Age: 39 Year
  Sex: Female
  Weight: 78 kg

DRUGS (5)
  1. PURAN [Concomitant]
     Active Substance: LEVOTHYROXINE SODIUM
     Dosage: 1 TABLET, DAILY (FASTING)
     Dates: start: 2002
  2. LYRICA [Suspect]
     Active Substance: PREGABALIN
     Dosage: 75 MG, UNK
     Dates: start: 201411
  3. CODEINE [Concomitant]
     Active Substance: CODEINE
     Indication: PAIN
     Dosage: 1 TABLET EVERY 6 HOURS
  4. PANTOPRAZOLE [Concomitant]
     Active Substance: PANTOPRAZOLE SODIUM
     Indication: GASTRIC DISORDER
     Dosage: 2 TABLETS EVERY 12 HOURS
     Dates: start: 201502
  5. ATENOLOL. [Concomitant]
     Active Substance: ATENOLOL
     Indication: ARRHYTHMIA
     Dosage: 2 TABLETS, DAILY
     Dates: start: 201407

REACTIONS (2)
  - Infarction [Unknown]
  - Arrhythmia [Unknown]
